FAERS Safety Report 7288051-3 (Version None)
Quarter: 2011Q1

REPORT INFORMATION
  Report Type: 
  Country: None (occurrence: None)
  Receive Date: 20110211
  Receipt Date: 20110203
  Transmission Date: 20110831
  Serious: Yes (Other)
  Sender: FDA-Public Use
  Company Number: PHHY2010US82908

PATIENT
  Sex: Male

DRUGS (4)
  1. LISINOPRIL [Concomitant]
     Dosage: UNK
  2. LAMISIL [Suspect]
     Dosage: UNK
     Route: 048
     Dates: start: 19950101
  3. TERBINAFINE HCL [Suspect]
     Dosage: TWO TABLETS
     Route: 048
  4. ATENOLOL [Concomitant]
     Dosage: UNK

REACTIONS (2)
  - LIP DISORDER [None]
  - DYSGEUSIA [None]
